FAERS Safety Report 19479730 (Version 1)
Quarter: 2021Q2

REPORT INFORMATION
  Report Type: Spontaneous
  Country: JP (occurrence: JP)
  Receive Date: 20210630
  Receipt Date: 20210630
  Transmission Date: 20210717
  Serious: Yes (Death)
  Sender: FDA-Public Use
  Company Number: JP-OTSUKA-2021_018803

PATIENT
  Age: 74 Year
  Sex: Male

DRUGS (1)
  1. ABILIFY MAINTENA [Suspect]
     Active Substance: ARIPIPRAZOLE
     Indication: DELIRIUM
     Dosage: 400 MG, SINGLE
     Route: 030
     Dates: start: 20210601

REACTIONS (5)
  - Productive cough [Fatal]
  - Off label use [Unknown]
  - Chronic obstructive pulmonary disease [Fatal]
  - Obstructive airways disorder [Fatal]
  - Emphysema [Fatal]

NARRATIVE: CASE EVENT DATE: 20210604
